FAERS Safety Report 8401720-4 (Version None)
Quarter: 2012Q2

REPORT INFORMATION
  Report Type: 
  Country: None (occurrence: None)
  Receive Date: 20120601
  Receipt Date: 20120526
  Transmission Date: 20120825
  Serious: Yes (Hospitalization)
  Sender: FDA-Public Use
  Company Number: US-BAYER-2012-007433

PATIENT
  Age: 40 Year
  Sex: Female
  Weight: 82.086 kg

DRUGS (11)
  1. YASMIN [Suspect]
     Dosage: UNK
     Dates: start: 20040212, end: 20091109
  2. CYCLOBENZAPRINE [Concomitant]
     Dosage: 5 MGM
  3. TRIAMERENCE-HCTZ [Concomitant]
     Indication: FLUID RETENTION
     Dosage: UNK
     Dates: start: 20040901, end: 20100823
  4. HYDROCHLOROTHIAZIDE [Concomitant]
     Dosage: UNK
     Dates: start: 20040901, end: 20110701
  5. IRON [Concomitant]
     Dosage: UNK
     Dates: start: 20091201
  6. VITAMIN D [Concomitant]
     Dosage: UNK
     Dates: start: 20091201
  7. DROSPIRENONE AND ETHINYL ESTRADIOL [Suspect]
     Dosage: UNK
     Dates: start: 20040212, end: 20091109
  8. OXYBUTYNIN [Concomitant]
     Indication: MICTURITION URGENCY
     Dosage: UNK
     Dates: start: 20040301
  9. HYDROCODONE BITARTRATE + ACETAMINOPHEN [Concomitant]
     Indication: MIGRAINE
     Dosage: UNK UNK, PRN
     Dates: start: 20040101
  10. MAGNESIUM [Concomitant]
     Dosage: UNK
     Dates: start: 20091201
  11. ZYRTEC [Concomitant]
     Indication: HYPERSENSITIVITY
     Dosage: UNK
     Dates: start: 20070301

REACTIONS (8)
  - POSTOPERATIVE WOUND COMPLICATION [None]
  - ACTIVITIES OF DAILY LIVING IMPAIRED [None]
  - GALLBLADDER DISORDER [None]
  - SKIN IRRITATION [None]
  - CHOLECYSTITIS ACUTE [None]
  - CHOLELITHIASIS [None]
  - INJURY [None]
  - CHOLECYSTITIS CHRONIC [None]
